FAERS Safety Report 23391294 (Version 1)
Quarter: 2024Q1

REPORT INFORMATION
  Report Type: Spontaneous
  Country: JP (occurrence: JP)
  Receive Date: 20240111
  Receipt Date: 20240111
  Transmission Date: 20240410
  Serious: Yes (Hospitalization, Other)
  Sender: FDA-Public Use
  Company Number: JP-CHUGAI-2024000010AA

PATIENT
  Age: 77 Year
  Sex: Male
  Weight: 54.9 kg

DRUGS (15)
  1. TECENTRIQ [Suspect]
     Active Substance: ATEZOLIZUMAB
     Indication: Hepatocellular carcinoma
     Dosage: 1200 MILLIGRAM, ONCE/3WEEKS
     Route: 065
     Dates: start: 20230510, end: 20230531
  2. TECENTRIQ [Suspect]
     Active Substance: ATEZOLIZUMAB
     Dosage: 1200 MILLIGRAM, ONCE/3WEEKS
     Route: 065
     Dates: start: 20230705
  3. AVASTIN [Suspect]
     Active Substance: BEVACIZUMAB
     Indication: Hepatocellular carcinoma
     Dosage: 800 MILLIGRAM, ONCE/3WEEKS
     Route: 065
     Dates: start: 20230510, end: 20230531
  4. AVASTIN [Suspect]
     Active Substance: BEVACIZUMAB
     Dosage: 800 MILLIGRAM, ONCE/3WEEKS
     Route: 065
     Dates: start: 20230705
  5. DAYVIGO [Concomitant]
     Active Substance: LEMBOREXANT
     Dosage: 5 MILLIGRAM
  6. LEVOTHYROXINE SODIUM [Concomitant]
     Active Substance: LEVOTHYROXINE SODIUM
     Dosage: 25 MICROGRAM
  7. ENALAPRIL MALEATE [Concomitant]
     Active Substance: ENALAPRIL MALEATE
     Dosage: 5 MILLIGRAM
  8. BISOPROLOL FUMARATE [Concomitant]
     Active Substance: BISOPROLOL FUMARATE
     Dosage: 2.5 MILLIGRAM
  9. EDOXABAN TOSYLATE [Concomitant]
     Active Substance: EDOXABAN TOSYLATE
     Dosage: 30 MILLIGRAM
  10. LANSOPRAZOLE [Concomitant]
     Active Substance: LANSOPRAZOLE
     Dosage: 15 MILLIGRAM
  11. NICORANDIL [Concomitant]
     Active Substance: NICORANDIL
     Dosage: 10MGDAY
  12. BETAHISTINE MESILATE [Concomitant]
     Active Substance: BETAHISTINE MESILATE
     Dosage: 12MG/DAY
  13. HEPARINOID [Concomitant]
     Dosage: UNK
  14. MIYA-BM [Concomitant]
     Active Substance: CLOSTRIDIUM BUTYRICUM SPORES STRAIN M-55
     Dosage: 3G/DAY
  15. SPIRONOLACTONE [Concomitant]
     Active Substance: SPIRONOLACTONE
     Dosage: 12.5 MILLIGRAM

REACTIONS (2)
  - Amylase increased [Recovering/Resolving]
  - Lipase increased [Recovering/Resolving]

NARRATIVE: CASE EVENT DATE: 20230607
